FAERS Safety Report 8031045-0 (Version None)
Quarter: 2012Q1

REPORT INFORMATION
  Report Type: 
  Country: None (occurrence: None)
  Receive Date: 20120109
  Receipt Date: 20120105
  Transmission Date: 20120608
  Serious: No
  Sender: FDA-Public Use
  Company Number: US-PFIZER INC-2012003967

PATIENT
  Sex: Male
  Weight: 77.098 kg

DRUGS (5)
  1. ACETAMINOPHEN [Suspect]
     Indication: EAR PAIN
     Dosage: 500 MG, AS NEEDED
     Route: 048
     Dates: start: 20120104
  2. IBUPROFEN (ADVIL) [Suspect]
     Indication: EAR PAIN
     Dosage: UNK
     Dates: start: 20020101
  3. ACETAMINOPHEN [Suspect]
     Indication: PHARYNGITIS STREPTOCOCCAL
  4. IBUPROFEN (ADVIL) [Suspect]
     Indication: PHARYNGITIS STREPTOCOCCAL
     Dosage: 200 MG, AS NEEDED
     Route: 048
     Dates: start: 20120104
  5. AMOXICILLIN [Concomitant]
     Indication: PHARYNGITIS STREPTOCOCCAL
     Dosage: 500 MG, 2X/DAY
     Dates: start: 20120101

REACTIONS (3)
  - RASH [None]
  - HYPERSENSITIVITY [None]
  - DRUG INEFFECTIVE [None]
